FAERS Safety Report 11271560 (Version 4)
Quarter: 2015Q3

REPORT INFORMATION
  Report Type: Spontaneous
  Country: FR (occurrence: FR)
  Receive Date: 20150714
  Receipt Date: 20150721
  Transmission Date: 20151125
  Serious: Yes (Death)
  Sender: FDA-Public Use
  Company Number: FR-009507513-1507FRA005724

PATIENT
  Age: 63 Year
  Sex: Male

DRUGS (8)
  1. ZOMIGORO [Suspect]
     Active Substance: ZOLMITRIPTAN
     Dosage: 1 TAB IN CASE OF CRISIS, TO RENEW WITHOUT EXCEEDING 2 TABS PER DAY
     Route: 048
     Dates: start: 20150311
  2. VERAPAMIL HYDROCHLORIDE. [Suspect]
     Active Substance: VERAPAMIL HYDROCHLORIDE
     Dosage: 1 DF (240 MG), QD
     Route: 048
     Dates: start: 20150116
  3. EPITOMAX [Suspect]
     Active Substance: TOPIRAMATE
     Dosage: 1 TABLET (STRENGTH 50 MG) IN THE MORNING AND 1 TABLET (STRENGTH 50 MG) IN THE EVENING
     Route: 048
     Dates: start: 20150311, end: 20150323
  4. KARDEGIC [Concomitant]
     Active Substance: ASPIRIN LYSINE
     Dosage: UNK
  5. CO-RENITEC [Concomitant]
     Active Substance: ENALAPRIL\HYDROCHLOROTHIAZIDE
     Dosage: UNK
     Route: 048
  6. CRESTOR [Concomitant]
     Active Substance: ROSUVASTATIN CALCIUM
     Dosage: UNK
  7. MAXALTLYO [Suspect]
     Active Substance: RIZATRIPTAN BENZOATE
     Dosage: 1 TABLET IN CASE OF CRISIS, TO RENEW WITHOUT EXCEEDING 2 TABS
     Route: 048
     Dates: start: 20150311
  8. XYLOCAINE [Suspect]
     Active Substance: LIDOCAINE HYDROCHLORIDE
     Dosage: 5% SPRAYER(SOLUTION FOR ORAL PULVERIZATION), 1 PUFF IN CASE OF CRISIS
     Route: 002
     Dates: start: 20150311

REACTIONS (1)
  - Sudden death [Fatal]

NARRATIVE: CASE EVENT DATE: 20150323
